FAERS Safety Report 10578138 (Version 1)
Quarter: 2014Q4

REPORT INFORMATION
  Report Type: Spontaneous
  Country: US (occurrence: US)
  Receive Date: 20141112
  Receipt Date: 20141112
  Transmission Date: 20150529
  Serious: Yes (Other)
  Sender: FDA-Public Use
  Company Number: US-AUROBINDO-AUR-APL-2014-11811

PATIENT
  Age: 59 Year
  Sex: Female

DRUGS (2)
  1. PHENAZOPYRIDINE. [Suspect]
     Active Substance: PHENAZOPYRIDINE
     Indication: PRODUCT USED FOR UNKNOWN INDICATION
     Dosage: 100 MG, FOUR TIMES/DAY
     Route: 065
  2. TRIMETHOPRIM+SULFAMETHOXAZOLE [Suspect]
     Active Substance: SULFAMETHOXAZOLE\TRIMETHOPRIM
     Indication: URINARY TRACT INFECTION
     Dosage: ONE DOSE, UNK
     Route: 065

REACTIONS (3)
  - Methaemoglobinaemia [Recovered/Resolved]
  - Troponin I increased [Recovered/Resolved]
  - Abdominal pain [Recovered/Resolved]
